FAERS Safety Report 4649424-8 (Version None)
Quarter: 2005Q2

REPORT INFORMATION
  Report Type: 
  Country: None (occurrence: None)
  Receive Date: 20050331
  Receipt Date: 20050120
  Transmission Date: 20051028
  Serious: No
  Sender: FDA-Public Use
  Company Number: 05P-163-0285415-00

PATIENT
  Age: 14 Year
  Sex: Female
  Weight: 65.7716 kg

DRUGS (7)
  1. HUMIRA [Suspect]
     Indication: CROHN'S DISEASE
     Dosage: 40 MG, 2 IN 1 WK, SUBCUTANEOUS; SUBCUTANEOUS
     Route: 058
     Dates: start: 20041001
  2. MESALAMINE [Concomitant]
  3. MERCAPTOPURINE [Concomitant]
  4. ONDANSETRON HYDROCHLORIDE [Concomitant]
  5. ALPRAZOLAM [Concomitant]
  6. LANSOPRAZOLE [Concomitant]
  7. VITAMINS [Concomitant]

REACTIONS (3)
  - INJECTION SITE HAEMORRHAGE [None]
  - INJECTION SITE PAIN [None]
  - INJECTION SITE RASH [None]
